FAERS Safety Report 8840009 (Version 1)
Quarter: 2012Q4

REPORT INFORMATION
  Report Type: 
  Country: IN (occurrence: IN)
  Receive Date: 20121015
  Receipt Date: 20121015
  Transmission Date: 20130627
  Serious: Yes (Death)
  Sender: FDA-Public Use
  Company Number: IN-PFIZER INC-2009236842

PATIENT
  Sex: Male

DRUGS (1)
  1. DALACIN [Suspect]
     Indication: INFECTION
     Dosage: 600 mg, 2x/day
     Route: 042

REACTIONS (1)
  - Granulocytopenia [Fatal]
